FAERS Safety Report 9678465 (Version 1)
Quarter: 2013Q4

REPORT INFORMATION
  Report Type: Spontaneous
  Country: US (occurrence: US)
  Receive Date: 20131108
  Receipt Date: 20131108
  Transmission Date: 20140711
  Serious: Yes (Hospitalization, Other)
  Sender: FDA-Public Use
  Company Number: US-BRISTOL-MYERS SQUIBB COMPANY-19706944

PATIENT
  Age: 73 Year
  Sex: Female
  Weight: 117.91 kg

DRUGS (2)
  1. ABATACEPT SUBQ INJECTION 125MG/ML [Suspect]
     Indication: RHEUMATOID ARTHRITIS
     Route: 058
  2. LISINOPRIL [Concomitant]
     Indication: HYPERTENSION

REACTIONS (6)
  - Tendon rupture [Unknown]
  - Streptococcal infection [Unknown]
  - Infection [Unknown]
  - Hypertension [Unknown]
  - Influenza [Unknown]
  - Weight increased [Unknown]
